FAERS Safety Report 17654687 (Version 1)
Quarter: 2020Q2

REPORT INFORMATION
  Report Type: Spontaneous
  Country: EG (occurrence: EG)
  Receive Date: 20200410
  Receipt Date: 20200410
  Transmission Date: 20200713
  Serious: Yes (Other)
  Sender: FDA-Public Use
  Company Number: EG-ELI_LILLY_AND_COMPANY-EG202003013381

PATIENT
  Age: 58 Year
  Sex: Female

DRUGS (2)
  1. GEMZAR [Suspect]
     Active Substance: GEMCITABINE HYDROCHLORIDE
     Indication: HEAD AND NECK CANCER
     Dosage: 1900 MG, CYCLICAL
     Route: 042
  2. CARBOTINOL [Concomitant]
     Active Substance: CARBOPLATIN
     Indication: HEAD AND NECK CANCER
     Dosage: 450 MG, CYCLICAL
     Route: 065

REACTIONS (3)
  - Haematocrit decreased [Unknown]
  - Blood creatinine decreased [Unknown]
  - Hypochromic anaemia [Recovered/Resolved]

NARRATIVE: CASE EVENT DATE: 20200203
